FAERS Safety Report 12235379 (Version 1)
Quarter: 2016Q2

REPORT INFORMATION
  Report Type: Spontaneous
  Country: BR (occurrence: BR)
  Receive Date: 20160404
  Receipt Date: 20160404
  Transmission Date: 20160815
  Serious: Yes (Death, Hospitalization)
  Sender: FDA-Public Use
  Company Number: BR-B.I. PHARMACEUTICALS,INC./RIDGEFIELD-2015-BI-47317BR

PATIENT
  Age: 87 Year
  Sex: Male
  Weight: 70 kg

DRUGS (11)
  1. FLORATIL [Concomitant]
     Indication: PRODUCT USED FOR UNKNOWN INDICATION
     Dosage: 1 ANZ
     Route: 050
     Dates: start: 201502, end: 201507
  2. ERANZ [Concomitant]
     Active Substance: DONEPEZIL HYDROCHLORIDE
     Indication: PARKINSON^S DISEASE
     Dosage: 5 MG
     Route: 050
     Dates: start: 2000
  3. MACRODANTIN [Concomitant]
     Active Substance: NITROFURANTOIN
     Indication: INFECTION PROPHYLAXIS
     Dosage: 100 MG
     Route: 048
     Dates: start: 2014
  4. SECOTEX [Suspect]
     Active Substance: TAMSULOSIN
     Indication: PROSTATIC DISORDER
     Dosage: 0.4 MG
     Route: 048
     Dates: start: 201409
  5. SEROQUEL [Concomitant]
     Active Substance: QUETIAPINE FUMARATE
     Indication: PARKINSON^S DISEASE
     Dosage: 25 MG
     Route: 050
     Dates: start: 2000
  6. SERTRALINE [Concomitant]
     Active Substance: SERTRALINE HYDROCHLORIDE
     Indication: PARKINSON^S DISEASE
     Dosage: 50 MG
     Route: 050
     Dates: start: 2000
  7. EBIX [Concomitant]
     Active Substance: MEMANTINE HYDROCHLORIDE
     Indication: PARKINSON^S DISEASE
     Dosage: 20 MG
     Route: 050
     Dates: start: 2000
  8. MIDODRINE [Concomitant]
     Active Substance: MIDODRINE
     Indication: DISEASE COMPLICATION
     Dosage: 20 MG
     Route: 050
     Dates: start: 2013
  9. PROLOPA [Concomitant]
     Active Substance: BENSERAZIDE\LEVODOPA
     Indication: PARKINSON^S DISEASE
     Dosage: ROUTE: GASTRIC TUBE; 2 TABLETS AND A HALF OF 200/50MG PER DAY
     Route: 050
     Dates: start: 2000
  10. ENDOFOLIN [Concomitant]
     Active Substance: FOLIC ACID
     Indication: PRODUCT USED FOR UNKNOWN INDICATION
     Dosage: 5 MG
     Route: 050
     Dates: start: 2014
  11. GLUTAFLORA [Concomitant]
     Indication: PRODUCT USED FOR UNKNOWN INDICATION
     Dosage: 1 ANZ
     Route: 050
     Dates: start: 201502, end: 201507

REACTIONS (6)
  - Parkinson^s disease [Fatal]
  - Asthenia [Recovered/Resolved]
  - Systemic infection [Recovered/Resolved]
  - Urinary tract infection [Not Recovered/Not Resolved]
  - Wrong technique in product usage process [Recovered/Resolved]
  - Renal failure [Fatal]

NARRATIVE: CASE EVENT DATE: 201412
